FAERS Safety Report 7758958-9 (Version None)
Quarter: 2011Q3

REPORT INFORMATION
  Report Type: 
  Country: None (occurrence: None)
  Receive Date: 20110919
  Receipt Date: 20110907
  Transmission Date: 20111222
  Serious: Yes (Hospitalization, Other)
  Sender: FDA-Public Use
  Company Number: US-ELI_LILLY_AND_COMPANY-US201006007262

PATIENT
  Sex: Female

DRUGS (16)
  1. CYMBALTA [Suspect]
     Dosage: UNK, UNKNOWN
  2. LIPITOR [Concomitant]
  3. CLARINEX [Concomitant]
  4. BONIVA [Concomitant]
     Dates: start: 20070101, end: 20090101
  5. KLONOPIN [Concomitant]
  6. PHENERGAN HCL [Concomitant]
     Dosage: UNK, AS NEEDED
  7. FLAGYL [Concomitant]
  8. CALCIUM CARBONATE [Concomitant]
  9. PREVACID [Concomitant]
  10. LOMOTIL [Concomitant]
     Dosage: UNK, AS NEEDED
  11. FORTEO [Suspect]
     Dosage: 20 UG, DAILY (1/D)
     Dates: start: 20050101, end: 20050101
  12. MULTIVITAMIN [Concomitant]
  13. FORTEO [Suspect]
     Indication: OSTEOPOROSIS
     Dosage: 20 UG, DAILY (1/D)
     Dates: end: 20050101
  14. CORTEF [Concomitant]
  15. ASACOL [Concomitant]
     Indication: COLITIS
     Dosage: 400 MG, 3/D
  16. LEVICIN [Concomitant]

REACTIONS (18)
  - VENOUS INJURY [None]
  - HERPES ZOSTER [None]
  - DEPRESSION [None]
  - ADRENAL INSUFFICIENCY [None]
  - OFF LABEL USE [None]
  - ANXIETY [None]
  - DENTAL CARIES [None]
  - PYREXIA [None]
  - ASTHENIA [None]
  - GINGIVAL RECESSION [None]
  - FUNCTIONAL GASTROINTESTINAL DISORDER [None]
  - GAIT DISTURBANCE [None]
  - OSTEOPOROSIS [None]
  - COLITIS MICROSCOPIC [None]
  - LOSS OF CONSCIOUSNESS [None]
  - BONE DENSITY DECREASED [None]
  - DIARRHOEA [None]
  - SJOGREN'S SYNDROME [None]
